FAERS Safety Report 8943785 (Version 1)
Quarter: 2012Q4

REPORT INFORMATION
  Report Type: 
  Country: US (occurrence: US)
  Receive Date: 20121204
  Receipt Date: 20121204
  Transmission Date: 20130627
  Serious: No
  Sender: FDA-Public Use
  Company Number: US-009507513-1212USA001101

PATIENT
  Age: 77 Year
  Sex: Female

DRUGS (2)
  1. CLARITIN [Suspect]
     Indication: HYPERSENSITIVITY
     Dosage: 5 mg, qd
     Route: 048
  2. CLARITIN [Suspect]
     Dosage: 20 mg, Once
     Route: 048
     Dates: start: 20121023

REACTIONS (4)
  - Headache [Unknown]
  - Pain in extremity [Unknown]
  - Accidental overdose [Unknown]
  - Underdose [Unknown]
